FAERS Safety Report 20254746 (Version 2)
Quarter: 2022Q1

REPORT INFORMATION
  Report Type: Spontaneous
  Country: US (occurrence: US)
  Receive Date: 20211230
  Receipt Date: 20220308
  Transmission Date: 20220423
  Serious: Yes (Other)
  Sender: FDA-Public Use
  Company Number: ENDG21-08417

PATIENT
  Sex: Female
  Weight: 49.887 kg

DRUGS (4)
  1. CHOLESTYRAMINE [Suspect]
     Active Substance: CHOLESTYRAMINE
     Indication: Diarrhoea
     Dosage: 1 DF, OD (ONE SCOOP IN THE MORNING)
     Route: 048
  2. CHOLESTYRAMINE [Suspect]
     Active Substance: CHOLESTYRAMINE
     Dosage: UNK UNKNOWN, UNKNOWN (HALF A SPOON)
     Route: 048
  3. ATENOLOL [Concomitant]
     Active Substance: ATENOLOL
     Indication: Cardiac valve disease
     Dosage: 25 MG, UNKNOWN
     Route: 065
  4. LISINOPRIL [Concomitant]
     Active Substance: LISINOPRIL
     Indication: Thyroid disorder
     Dosage: UNK UNKNOWN, UNKNOWN
     Route: 065

REACTIONS (4)
  - Neoplasm malignant [Not Recovered/Not Resolved]
  - Weight decreased [Unknown]
  - Intentional product use issue [Not Recovered/Not Resolved]
  - Off label use [Not Recovered/Not Resolved]
